FAERS Safety Report 5886650-4 (Version None)
Quarter: 2008Q3

REPORT INFORMATION
  Report Type: 
  Country: None (occurrence: None)
  Receive Date: 20080917
  Receipt Date: 20080909
  Transmission Date: 20090109
  Serious: Yes (Disabling, Other)
  Sender: FDA-Public Use
  Company Number: PHEH2004US03586

PATIENT
  Sex: Female

DRUGS (20)
  1. AREDIA [Suspect]
     Indication: MULTIPLE MYELOMA
     Dosage: 90 MG/QMONTH
     Route: 042
     Dates: start: 19980101, end: 20010701
  2. PAXIL [Concomitant]
  3. K-DUR [Concomitant]
  4. MS CONTIN [Concomitant]
  5. VINCRISTINE [Concomitant]
  6. ADRIAMYCIN PFS [Concomitant]
  7. CYTOXAN [Concomitant]
  8. PREDNISONE TAB [Concomitant]
  9. DECADRON SRC [Concomitant]
     Dosage: ONE DOSE
  10. VALIUM [Concomitant]
     Dosage: 2 MG, UNK
  11. COUMADIN [Concomitant]
  12. TYLENOL W/ CODEINE NO. 3 [Concomitant]
  13. AXID [Concomitant]
     Dosage: 150 MG, UNK
  14. MULTI-VITAMINS [Concomitant]
  15. DIFLUCAN [Concomitant]
     Dosage: 200 MG, UNK
  16. KYTRIL [Concomitant]
     Dosage: 1 MG, UNK
  17. MELPHALAN [Concomitant]
  18. LASIX [Concomitant]
     Dosage: 20 MG, UNK
  19. ATIVAN [Concomitant]
     Dosage: 0.25 MG, UNK
  20. OXYCONTIN [Concomitant]
     Dosage: 10 MG, UNK

REACTIONS (9)
  - BONE DISORDER [None]
  - BONE MARROW TRANSPLANT [None]
  - DYSGEUSIA [None]
  - INFECTION [None]
  - JAW OPERATION [None]
  - OSTEONECROSIS [None]
  - PAIN [None]
  - STEM CELL TRANSPLANT [None]
  - X-RAY DENTAL [None]
